FAERS Safety Report 5987370-8 (Version None)
Quarter: 2008Q4

REPORT INFORMATION
  Report Type: 
  Country: None (occurrence: None)
  Receive Date: 20081209
  Receipt Date: 20081202
  Transmission Date: 20090506
  Serious: Yes (Hospitalization)
  Sender: FDA-Public Use
  Company Number: PHEH2008US10108

PATIENT

DRUGS (8)
  1. SANDOSTATIN LAR [Suspect]
     Indication: CARCINOID SYNDROME
     Dosage: 20 MCG MONTHLY
     Route: 030
     Dates: start: 20080229, end: 20080626
  2. FOSAMAX [Concomitant]
     Dosage: 70 MG WEEKLY
  3. SYNTHROID [Concomitant]
     Dosage: .1 MG DAILY
     Route: 048
  4. VERAPAMIL [Concomitant]
     Route: 048
  5. PREVACID [Concomitant]
     Dosage: 30 MG, BID
     Route: 048
  6. LIPITOR [Concomitant]
     Dosage: 10 MG, QD
     Route: 048
  7. TRIAMTERENE [Concomitant]
     Dosage: 25 MG, QD
  8. LISINOPRIL [Concomitant]
     Dosage: 10 MG, QD

REACTIONS (2)
  - ALPHA HAEMOLYTIC STREPTOCOCCAL INFECTION [None]
  - INJECTION SITE ABSCESS [None]
